FAERS Safety Report 18507536 (Version 1)
Quarter: 2020Q4

REPORT INFORMATION
  Report Type: Spontaneous
  Country: JP (occurrence: JP)
  Receive Date: 20201116
  Receipt Date: 20201116
  Transmission Date: 20210114
  Serious: Yes (Other)
  Sender: FDA-Public Use
  Company Number: JP-PFIZER INC-2020444146

PATIENT

DRUGS (1)
  1. WYPAX 0.5 [Suspect]
     Active Substance: LORAZEPAM
     Dosage: UNK, 2X/DAY
     Route: 048

REACTIONS (1)
  - Cataract [Unknown]
